FAERS Safety Report 14925837 (Version 5)
Quarter: 2019Q3

REPORT INFORMATION
  Report Type: Report from Study
  Country: US (occurrence: US)
  Receive Date: 20180522
  Receipt Date: 20190724
  Transmission Date: 20191004
  Serious: Yes (Hospitalization)
  Sender: FDA-Public Use
  Company Number: US-ACTELION-A-US2016-134337

PATIENT
  Age: 54 Year
  Sex: Female
  Weight: 69.39 kg

DRUGS (3)
  1. OPSUMIT [Suspect]
     Active Substance: MACITENTAN
     Indication: PULMONARY ARTERIAL HYPERTENSION
     Dosage: 10 MG, QD
     Route: 048
     Dates: start: 20160316
  2. OXYGEN. [Concomitant]
     Active Substance: OXYGEN
     Dosage: 2 L/MIN, UNK
  3. RIOCIGUAT. [Concomitant]
     Active Substance: RIOCIGUAT

REACTIONS (33)
  - Intervertebral disc operation [Unknown]
  - Cerebrovascular accident [Unknown]
  - Fatigue [Unknown]
  - Nasal congestion [Unknown]
  - Lacrimation increased [Unknown]
  - Syncope [Unknown]
  - Intervertebral disc protrusion [Unknown]
  - Head discomfort [Unknown]
  - Eye swelling [Unknown]
  - Sinusitis [Unknown]
  - Heart rate increased [Unknown]
  - Blood pressure abnormal [Unknown]
  - Blood pressure increased [Unknown]
  - Rhinorrhoea [Unknown]
  - Balance disorder [Unknown]
  - Nausea [Unknown]
  - Gastritis [Unknown]
  - Fall [Unknown]
  - Blood iron increased [Unknown]
  - Weight decreased [Unknown]
  - Initial insomnia [Unknown]
  - Neck surgery [Unknown]
  - Decreased appetite [Unknown]
  - Swelling face [Unknown]
  - Tachycardia [Unknown]
  - Neck injury [Unknown]
  - Nerve injury [Unknown]
  - Middle insomnia [Not Recovered/Not Resolved]
  - Headache [Unknown]
  - Chest pain [Unknown]
  - Dyspnoea [Unknown]
  - Dizziness [Recovering/Resolving]
  - Dry mouth [Unknown]

NARRATIVE: CASE EVENT DATE: 201603
